FAERS Safety Report 7806000-3 (Version None)
Quarter: 2011Q4

REPORT INFORMATION
  Report Type: 
  Country: None (occurrence: None)
  Receive Date: 20111011
  Receipt Date: 20111003
  Transmission Date: 20120403
  Serious: Yes (Other)
  Sender: FDA-Public Use
  Company Number: US-UCBSA-037078

PATIENT
  Age: 55 Year
  Sex: Female
  Weight: 65.32 kg

DRUGS (3)
  1. VIMPAT [Suspect]
     Indication: CONVULSION
     Dosage: 25 MG OR 50 MG, TWO TIMES DAILY
     Route: 048
     Dates: start: 20110501, end: 20110801
  2. M.V.I. [Concomitant]
     Route: 048
  3. LAMICTAL [Concomitant]
     Indication: CONVULSION
     Route: 048
     Dates: start: 20060101

REACTIONS (3)
  - RASH [None]
  - PRURITUS [None]
  - INFLAMMATORY CARCINOMA OF THE BREAST [None]
